FAERS Safety Report 20310775 (Version 2)
Quarter: 2022Q1

REPORT INFORMATION
  Report Type: Spontaneous
  Country: US (occurrence: US)
  Receive Date: 20220107
  Receipt Date: 20220217
  Transmission Date: 20220423
  Serious: Yes (Death, Other)
  Sender: FDA-Public Use
  Company Number: US-PFIZER INC-2020413537

PATIENT
  Age: 73 Year
  Sex: Male

DRUGS (1)
  1. VYNDAMAX [Suspect]
     Active Substance: TAFAMIDIS
     Dosage: 61 MG

REACTIONS (18)
  - Cardiogenic shock [Fatal]
  - Cardiac failure congestive [Unknown]
  - Cataract [Unknown]
  - Cardiac amyloidosis [Unknown]
  - Cardiomyopathy [Unknown]
  - Tricuspid valve incompetence [Unknown]
  - Chronic kidney disease [Unknown]
  - Erectile dysfunction [Unknown]
  - Hypokalaemia [Unknown]
  - Leukopenia [Unknown]
  - Chronic left ventricular failure [Unknown]
  - Benign prostatic hyperplasia [Unknown]
  - Electrolyte imbalance [Unknown]
  - Blood testosterone decreased [Unknown]
  - Malaise [Unknown]
  - Blood alkaline phosphatase increased [Unknown]
  - Peripheral swelling [Unknown]
  - Refraction disorder [Unknown]

NARRATIVE: CASE EVENT DATE: 20211229
